FAERS Safety Report 5108692-9 (Version None)
Quarter: 2006Q3

REPORT INFORMATION
  Report Type: 
  Country: None (occurrence: None)
  Receive Date: 20060915
  Receipt Date: 20060904
  Transmission Date: 20061208
  Serious: Yes (Hospitalization)
  Sender: FDA-Public Use
  Company Number: 2006107517

PATIENT
  Age: 38 Year
  Sex: Male

DRUGS (6)
  1. VFEND [Suspect]
     Indication: DRUG USE FOR UNKNOWN INDICATION
     Dosage: 800 MG (400 MG, 2 IN 1 D), INTRAVENOUS
     Route: 042
     Dates: start: 20060727, end: 20060731
  2. FLAGYL I.V. [Suspect]
     Indication: DRUG USE FOR UNKNOWN INDICATION
     Dosage: INTRAVENOUS
     Route: 042
     Dates: start: 20060628, end: 20060707
  3. TRAMADOL HCL [Suspect]
     Indication: DRUG USE FOR UNKNOWN INDICATION
     Dosage: 200 MG (100 MG, 2 IN 1 D), ORAL
     Route: 048
     Dates: start: 20060728, end: 20060730
  4. AMIKIN [Suspect]
     Indication: DRUG USE FOR UNKNOWN INDICATION
     Dosage: 900 MG (450 MG, 2 IN 1 D), INTRAVENOUS
     Route: 042
     Dates: start: 20060727, end: 20060804
  5. CYMEVAN (GANCICLOVIR SODIUM) [Suspect]
     Indication: DRUG USE FOR UNKNOWN INDICATION
     Dosage: 600 MG (300 MG, 2 IN 1 D), INTRAVENOUS
     Route: 042
     Dates: start: 20060727, end: 20060729
  6. TIENAM (CILASTATIN, IMIPENEM) [Suspect]
     Indication: DRUG USE FOR UNKNOWN INDICATION
     Dosage: 2 GRAM (500 MG, 4 IN 1 D), INTRAVENOUS
     Route: 042
     Dates: start: 20060727, end: 20060804

REACTIONS (1)
  - STEVENS-JOHNSON SYNDROME [None]
